FAERS Safety Report 4803934-9 (Version None)
Quarter: 2005Q3

REPORT INFORMATION
  Report Type: 
  Country: None (occurrence: None)
  Receive Date: 20050920
  Receipt Date: 20050711
  Transmission Date: 20060218
  Serious: No
  Sender: FDA-Public Use
  Company Number: US-YAMANOUCHI-YPA20050245

PATIENT
  Age: 47 Year
  Sex: Male
  Weight: 58.0604 kg

DRUGS (22)
  1. VESICARE [Suspect]
     Indication: POLLAKIURIA
     Dosage: 5 MG QD PO
     Route: 048
     Dates: start: 20050505
  2. FIBERCON [Concomitant]
  3. SERAX [Concomitant]
  4. PRILOSEC [Concomitant]
  5. ELAVIL [Concomitant]
  6. FOLIC ACID [Concomitant]
  7. NEURONTIN [Concomitant]
  8. PLAVIX [Concomitant]
  9. IMDUR [Concomitant]
  10. ZOCOR [Concomitant]
  11. THYROID TAB [Concomitant]
  12. EFFEXOR XR [Concomitant]
  13. QUININE [Concomitant]
  14. ZANAFLEX [Concomitant]
  15. TOPROL-XL [Concomitant]
  16. SENNA S [Concomitant]
  17. THIAMINE HCL [Concomitant]
  18. FERROUS SULFATE TAB [Concomitant]
  19. MARINOL [Concomitant]
  20. HYDROCODONE [Concomitant]
  21. DURAGESIC-100 [Concomitant]
  22. HYPOGLYCEMIA TABLETS [Concomitant]

REACTIONS (2)
  - COUGH [None]
  - PULMONARY CONGESTION [None]
